FAERS Safety Report 6014670-8 (Version None)
Quarter: 2008Q4

REPORT INFORMATION
  Report Type: 
  Country: None (occurrence: None)
  Receive Date: 20081219
  Receipt Date: 20081211
  Transmission Date: 20090506
  Serious: Yes (Hospitalization)
  Sender: FDA-Public Use
  Company Number: CH-TYCO HEALTHCARE/MALLINCKRODT-T200802107

PATIENT

DRUGS (1)
  1. OPTIRAY 300 [Suspect]
     Indication: COMPUTERISED TOMOGRAM
     Dosage: 100 ML, SINGLE
     Route: 051
     Dates: start: 20081003, end: 20081003

REACTIONS (3)
  - DRUG ADMINISTRATION ERROR [None]
  - INJECTION SITE EXTRAVASATION [None]
  - INJECTION SITE VESICLES [None]
